FAERS Safety Report 9013276 (Version 1)
Quarter: 2013Q1

REPORT INFORMATION
  Report Type: Spontaneous
  Country: US (occurrence: None)
  Receive Date: 20130107
  Receipt Date: 20130107
  Transmission Date: 20140127
  Serious: Yes (Other)
  Sender: FDA-Public Use
  Company Number: None

PATIENT
  Age: 31 Year
  Sex: Female
  Weight: 61.24 kg

DRUGS (1)
  1. CIPROFLOXACIN [Suspect]
     Indication: URINARY TRACT INFECTION
     Dosage: ONE TABLET BY MOUTH, TWICE DAILY, PO
     Route: 048
     Dates: start: 20121229, end: 20130104

REACTIONS (8)
  - Headache [None]
  - Anxiety [None]
  - Insomnia [None]
  - Nervousness [None]
  - Paranoia [None]
  - Depression [None]
  - Hallucination [None]
  - Productive cough [None]
